FAERS Safety Report 17893411 (Version 1)
Quarter: 2020Q2

REPORT INFORMATION
  Report Type: Other
  Country: NL (occurrence: NL)
  Receive Date: 20200615
  Receipt Date: 20200615
  Transmission Date: 20200714
  Serious: Yes (Other)
  Sender: FDA-Public Use
  Company Number: NL-NUVO PHARMACEUTICALS INC-2085795

PATIENT
  Age: 43 Year
  Sex: Female

DRUGS (2)
  1. CALCIUM CARBONATE WITH VITAMIN D (CHOLECALCIFEROL) [Concomitant]
     Active Substance: CALCIUM CARBONATE\CHOLECALCIFEROL
     Route: 065
  2. FOLIC ACID. [Suspect]
     Active Substance: FOLIC ACID
     Indication: MICROCYTIC ANAEMIA
     Route: 065

REACTIONS (2)
  - Acute polyneuropathy [Unknown]
  - Neuropsychiatric symptoms [Recovered/Resolved]
